FAERS Safety Report 7714729-0 (Version None)
Quarter: 2011Q3

REPORT INFORMATION
  Report Type: 
  Country: None (occurrence: None)
  Receive Date: 20110804
  Receipt Date: 20100805
  Transmission Date: 20111222
  Serious: Yes (Hospitalization)
  Sender: FDA-Public Use
  Company Number: DSU-2010-03942

PATIENT
  Sex: Female

DRUGS (1)
  1. BENICAR HCT [Suspect]
     Indication: HYPERTENSION
     Dosage: 20/12.5MG (QD),PER ORAL ; 40/25MG (QD), PER ORAL ; 20/12.5MG (QD), PER ORAL
     Route: 048

REACTIONS (2)
  - HYPOTENSION [None]
  - CHEST PAIN [None]
